FAERS Safety Report 7099310 (Version 6)
Quarter: 2016Q1

REPORT INFORMATION
  Report Type: Spontaneous
  Country: JP (occurrence: JP)
  Receive Date: 20090828
  Receipt Date: 20160104
  Transmission Date: 20160526
  Serious: Yes (Hospitalization, Other)
  Sender: FDA-Public Use
  Company Number: JP-BRISTOL-MYERS SQUIBB COMPANY-14754816

PATIENT
  Age: 37 Year
  Sex: Female

DRUGS (17)
  1. LULLAN [Suspect]
     Active Substance: PEROSPIRONE HYDROCHLORIDE
     Indication: PERSONALITY DISORDER
  2. ABILIFY [Suspect]
     Active Substance: ARIPIPRAZOLE
     Indication: SCHIZOPHRENIA
     Dosage: 21 MG, QD
     Route: 048
     Dates: start: 2006
  3. LULLAN [Suspect]
     Active Substance: PEROSPIRONE HYDROCHLORIDE
     Indication: AFFECT LABILITY
     Dosage: 8 MG, QD
     Route: 048
     Dates: start: 2006
  4. DEPROMEL [Suspect]
     Active Substance: FLUVOXAMINE
     Indication: PERSONALITY DISORDER
  5. ABILIFY [Suspect]
     Active Substance: ARIPIPRAZOLE
     Indication: DEPRESSIVE SYMPTOM
  6. MIRADOL [Suspect]
     Active Substance: SULPIRIDE
     Indication: DEPRESSIVE SYMPTOM
  7. LULLAN [Suspect]
     Active Substance: PEROSPIRONE HYDROCHLORIDE
     Indication: DEPRESSIVE SYMPTOM
  8. SEROQUEL [Suspect]
     Active Substance: QUETIAPINE FUMARATE
     Indication: AFFECT LABILITY
     Dosage: TABS
     Route: 048
     Dates: start: 2006
  9. ABILIFY [Suspect]
     Active Substance: ARIPIPRAZOLE
     Indication: PERSONALITY DISORDER
  10. BENZALIN [Suspect]
     Active Substance: NITRAZEPAM
     Indication: INSOMNIA
     Dosage: 5 MG, QD
     Route: 048
     Dates: start: 2006
  11. DEPROMEL [Suspect]
     Active Substance: FLUVOXAMINE
     Indication: DEPRESSIVE SYMPTOM
     Dosage: 50 MG, QD
     Route: 048
     Dates: start: 2006
  12. DEPROMEL [Suspect]
     Active Substance: FLUVOXAMINE
     Indication: AFFECT LABILITY
  13. MIRADOL [Suspect]
     Active Substance: SULPIRIDE
     Indication: PERSONALITY DISORDER
  14. SEROQUEL [Suspect]
     Active Substance: QUETIAPINE FUMARATE
     Indication: DEPRESSIVE SYMPTOM
  15. SEROQUEL [Suspect]
     Active Substance: QUETIAPINE FUMARATE
     Indication: PERSONALITY DISORDER
  16. ABILIFY [Suspect]
     Active Substance: ARIPIPRAZOLE
     Indication: AFFECT LABILITY
  17. MIRADOL [Suspect]
     Active Substance: SULPIRIDE
     Indication: AFFECT LABILITY
     Dosage: TABS
     Route: 048
     Dates: start: 2006

REACTIONS (2)
  - Abortion spontaneous [Unknown]
  - Maternal exposure during pregnancy [Recovered/Resolved]

NARRATIVE: CASE EVENT DATE: 20090808
